FAERS Safety Report 7653021-X (Version None)
Quarter: 2011Q3

REPORT INFORMATION
  Report Type: 
  Country: None (occurrence: None)
  Receive Date: 20110803
  Receipt Date: 20110720
  Transmission Date: 20111222
  Serious: Yes (Death)
  Sender: FDA-Public Use
  Company Number: CA-ROCHE-791348

PATIENT
  Age: 51 Year
  Sex: Female

DRUGS (9)
  1. DIPHENHYDRAMINE HCL [Suspect]
     Route: 065
  2. CITALOPRAM HYDROBROMIDE [Suspect]
     Route: 065
  3. OXAZEPAM [Suspect]
     Route: 065
  4. BENZODIAZEPINES [Concomitant]
  5. FENTANYL [Suspect]
     Route: 065
  6. TEMAZEPAM [Suspect]
     Route: 065
  7. DIAZEPAM [Suspect]
     Route: 065
  8. METHADONE HYDROCHLORIDE [Suspect]
     Route: 065
  9. NORTRIPTYLINE HCL [Suspect]
     Route: 065

REACTIONS (3)
  - DRUG ABUSE [None]
  - TOXICITY TO VARIOUS AGENTS [None]
  - MULTIPLE DRUG OVERDOSE [None]
